FAERS Safety Report 9711226 (Version 1)
Quarter: 2013Q4

REPORT INFORMATION
  Report Type: Spontaneous
  Country: US (occurrence: US)
  Receive Date: 20131126
  Receipt Date: 20131126
  Transmission Date: 20140711
  Serious: No
  Sender: FDA-Public Use
  Company Number: US-BRISTOL-MYERS SQUIBB COMPANY-18743096

PATIENT
  Age: 49 Year
  Sex: Female
  Weight: 83.9 kg

DRUGS (11)
  1. BYDUREON [Suspect]
     Indication: DIABETES MELLITUS
     Route: 058
     Dates: start: 201302
  2. METFORMIN HCL [Suspect]
     Dosage: 1DF = 250
  3. GLIMEPIRIDE [Suspect]
  4. LISINOPRIL [Concomitant]
  5. LIPITOR [Concomitant]
  6. ZITHROMAX Z-PAK [Concomitant]
  7. TAMIFLU [Concomitant]
  8. LEVAQUIN [Concomitant]
  9. BENZONATATE [Concomitant]
  10. VIVELLE [Concomitant]
  11. ESTRADIOL [Concomitant]

REACTIONS (2)
  - Influenza [Recovering/Resolving]
  - Blood glucose decreased [Unknown]
